FAERS Safety Report 14933282 (Version 1)
Quarter: 2018Q2

REPORT INFORMATION
  Report Type: Spontaneous
  Country: US (occurrence: US)
  Receive Date: 20180524
  Receipt Date: 20180524
  Transmission Date: 20180711
  Serious: No
  Sender: FDA-Public Use
  Company Number: US-PFIZER INC-2018011373

PATIENT
  Age: 55 Year
  Sex: Female
  Weight: 87.53 kg

DRUGS (6)
  1. TAXOTERE [Suspect]
     Active Substance: DOCETAXEL
     Indication: BREAST CANCER
     Dosage: 120 MG, CYCLIC (4 CYCLES, EVERY 3 WEEKS)
     Dates: start: 20110713, end: 20110915
  2. TAXOTERE [Suspect]
     Active Substance: DOCETAXEL
     Dosage: 100 MG, CYCLIC (4 CYCLES, EVERY 3 WEEKS)
     Dates: start: 20110713, end: 20110915
  3. NEOSAR [Concomitant]
     Active Substance: CYCLOPHOSPHAMIDE
     Indication: CHEMOTHERAPY
     Dosage: UNK
  4. CYTOXAN [Concomitant]
     Active Substance: CYCLOPHOSPHAMIDE
     Indication: CHEMOTHERAPY
     Dosage: UNK
  5. DOCETAXEL. [Suspect]
     Active Substance: DOCETAXEL
     Indication: BREAST CANCER
     Dosage: 120 MG, CYCLIC (4 CYCLES, EVERY THREE WEEKS)
     Dates: start: 20110713, end: 20110915
  6. DOCETAXEL. [Suspect]
     Active Substance: DOCETAXEL
     Dosage: 100 MG, CYCLIC (4 CYCLES, EVERY THREE WEEKS)
     Dates: start: 20110713, end: 20110915

REACTIONS (5)
  - Alopecia [Not Recovered/Not Resolved]
  - Hair texture abnormal [Not Recovered/Not Resolved]
  - Hair disorder [Not Recovered/Not Resolved]
  - Hair colour changes [Not Recovered/Not Resolved]
  - Madarosis [Not Recovered/Not Resolved]

NARRATIVE: CASE EVENT DATE: 20120315
